FAERS Safety Report 20430748 (Version 1)
Quarter: 2022Q1

REPORT INFORMATION
  Report Type: Report from Study
  Country: FR (occurrence: FR)
  Receive Date: 20220204
  Receipt Date: 20220204
  Transmission Date: 20220424
  Serious: Yes (Hospitalization)
  Sender: FDA-Public Use
  Company Number: FR-SERVIER-S21003952

PATIENT

DRUGS (8)
  1. PEGASPARGASE [Suspect]
     Active Substance: PEGASPARGASE
     Indication: Acute lymphocytic leukaemia
     Dosage: 1850 IU, QD ON D15 AND D43
     Route: 042
     Dates: start: 20180326, end: 20180409
  2. TN UNSPECIFIED [Concomitant]
     Indication: Acute lymphocytic leukaemia
     Dosage: 740 MG ON D1 AND D29
     Route: 042
     Dates: start: 20180309, end: 20180409
  3. TN UNSPECIFIED [Concomitant]
     Indication: Acute lymphocytic leukaemia
     Dosage: 40 MG ON D1 TO D10 AND D29 TO D42
     Route: 048
     Dates: start: 20180309, end: 20180325
  4. TN UNSPECIFIED [Concomitant]
     Indication: Acute lymphocytic leukaemia
     Dosage: 1.1 MG ON D15, D22, D43, AND D50
     Route: 042
     Dates: start: 20180326, end: 20180430
  5. TN UNSPECIFIED [Concomitant]
     Indication: Acute lymphocytic leukaemia
     Dosage: 55 MG ON D3 TO D5, D10 TO D13, AND D31
     Route: 042
     Dates: start: 20180312, end: 20180421
  6. TN UNSPECIFIED [Concomitant]
     Dosage: 30 MG ON D31
     Route: 037
     Dates: start: 20180411
  7. TN UNSPECIFIED [Concomitant]
     Indication: Acute lymphocytic leukaemia
     Dosage: 12 MG ON D31
     Route: 037
     Dates: start: 20180411
  8. TN UNSPECIFIED [Concomitant]
     Indication: Acute lymphocytic leukaemia
     Dosage: 15 MG ON D31
     Route: 037
     Dates: start: 20180411

REACTIONS (1)
  - Febrile bone marrow aplasia [Recovered/Resolved]

NARRATIVE: CASE EVENT DATE: 20180508
